FAERS Safety Report 23244405 (Version 1)
Quarter: 2023Q4

REPORT INFORMATION
  Report Type: Spontaneous
  Country: US (occurrence: US)
  Receive Date: 20231130
  Receipt Date: 20231130
  Transmission Date: 20240109
  Serious: Yes (Hospitalization, Other)
  Sender: FDA-Public Use
  Company Number: US-Merck Healthcare KGaA-2023490202

PATIENT
  Age: 62 Year
  Sex: Male

DRUGS (5)
  1. METFORMIN HYDROCHLORIDE [Suspect]
     Active Substance: METFORMIN HYDROCHLORIDE
     Indication: Type 2 diabetes mellitus
  2. DOLUTEGRAVIR [Suspect]
     Active Substance: DOLUTEGRAVIR
     Indication: HIV infection
  3. ATAZANAVIR SULFATE\COBICISTAT [Suspect]
     Active Substance: ATAZANAVIR SULFATE\COBICISTAT
     Indication: HIV infection
  4. RILPIVIRINE [Suspect]
     Active Substance: RILPIVIRINE
     Indication: HIV infection
  5. DULAGLUTIDE [Suspect]
     Active Substance: DULAGLUTIDE
     Indication: Product used for unknown indication

REACTIONS (11)
  - Binge drinking [Unknown]
  - Dehydration [Unknown]
  - Acute kidney injury [Unknown]
  - Lactic acidosis [Recovered/Resolved]
  - Vomiting [Unknown]
  - Nausea [Unknown]
  - Diarrhoea [Unknown]
  - Drug interaction [Unknown]
  - Contraindicated product administered [Unknown]
  - Blood glucose decreased [Unknown]
  - Blood ketone body increased [Unknown]
